FAERS Safety Report 6817110-1 (Version None)
Quarter: 2010Q3

REPORT INFORMATION
  Report Type: 
  Country: None (occurrence: None)
  Receive Date: 20100706
  Receipt Date: 20100625
  Transmission Date: 20110219
  Serious: Yes (Other)
  Sender: FDA-Public Use
  Company Number: ES-ROCHE-711590

PATIENT
  Sex: Male

DRUGS (1)
  1. LARIAM [Suspect]
     Indication: MALARIA PROPHYLAXIS
     Route: 065
     Dates: start: 20080101, end: 20080101

REACTIONS (6)
  - HAIR DISORDER [None]
  - HANGOVER [None]
  - INSOMNIA [None]
  - NERVOUSNESS [None]
  - TINNITUS [None]
  - VISUAL IMPAIRMENT [None]
